FAERS Safety Report 14534970 (Version 7)
Quarter: 2022Q4

REPORT INFORMATION
  Report Type: Report from Study
  Country: GB (occurrence: GB)
  Receive Date: 20180215
  Receipt Date: 20221128
  Transmission Date: 20230113
  Serious: Yes (Death, Hospitalization, Other)
  Sender: FDA-Public Use
  Company Number: GB-CELGENE-GBR-2015115698

PATIENT

DRUGS (29)
  1. DEXAMETHASONE [Suspect]
     Active Substance: DEXAMETHASONE
     Indication: Plasma cell myeloma
     Dosage: 40 MG, QD
     Route: 048
     Dates: start: 20080811, end: 200811
  2. DEXAMETHASONE [Suspect]
     Active Substance: DEXAMETHASONE
     Dosage: 40 MILLIGRAM DAILY; 40 MG
     Route: 048
     Dates: start: 20150722
  3. DEXAMETHASONE [Suspect]
     Active Substance: DEXAMETHASONE
     Dosage: 680 MG
     Route: 065
  4. DEXAMETHASONE [Suspect]
     Active Substance: DEXAMETHASONE
     Indication: Plasma cell myeloma
     Dosage: 40 MG, QD
     Route: 048
     Dates: start: 20080811, end: 20080811
  5. DEXAMETHASONE [Suspect]
     Active Substance: DEXAMETHASONE
     Dosage: 40 MG, 1 DOSE WEEKLY
     Route: 048
     Dates: start: 20150708
  6. DEXAMETHASONE [Suspect]
     Active Substance: DEXAMETHASONE
     Dosage: UNK
     Route: 048
     Dates: start: 20110308, end: 20110520
  7. DEXAMETHASONE [Suspect]
     Active Substance: DEXAMETHASONE
     Dosage: 40 MG, 1 DOSE WEEKLY
     Route: 048
     Dates: start: 20150715
  8. DEXAMETHASONE [Suspect]
     Active Substance: DEXAMETHASONE
     Dosage: 40 MG, 1 DOSE WEEKLY
     Route: 048
     Dates: start: 20150630
  9. DEXAMETHASONE [Suspect]
     Active Substance: DEXAMETHASONE
     Dosage: 40 MG, 1 DOSE WEEKLY
     Route: 048
     Dates: start: 20150701, end: 20150722
  10. POMALIDOMIDE [Suspect]
     Active Substance: POMALIDOMIDE
     Indication: Plasma cell myeloma
     Dosage: 4MG
     Route: 048
     Dates: start: 20150701, end: 20150721
  11. POMALIDOMIDE [Suspect]
     Active Substance: POMALIDOMIDE
     Dosage: 4MG 24 DOSE 28 DAYS
     Route: 048
     Dates: start: 20150630, end: 20150721
  12. POMALIDOMIDE [Suspect]
     Active Substance: POMALIDOMIDE
     Dosage: 84 MG (1 DOSE 28 DAYS (4 MG))
     Route: 065
     Dates: start: 20150721, end: 20150721
  13. POMALIDOMIDE [Suspect]
     Active Substance: POMALIDOMIDE
     Dosage: 84 MG (84 MILLIGRAM, Q28D)
     Route: 065
     Dates: start: 20150701, end: 20150721
  14. POMALIDOMIDE [Suspect]
     Active Substance: POMALIDOMIDE
     Dosage: 84 MG (1 DOSE 28 DAYS)
     Route: 048
     Dates: start: 20150630, end: 20150721
  15. AMLODIPINE [Concomitant]
     Active Substance: AMLODIPINE BESYLATE
     Indication: Hypertension
     Dosage: 5 MG, QD (5 MILLIGRAM DAILY; THERAPY END FLAG: DRUG NO LONGER)
     Route: 048
     Dates: start: 2010, end: 20150622
  16. ASPIRIN [Concomitant]
     Active Substance: ASPIRIN
     Indication: Thrombosis prophylaxis
     Dosage: 75 MG, QD, 75 MILLIGRAM DAILY; THERAPY END FLAG: DRUG NO LONGER
     Route: 048
     Dates: start: 20150120, end: 201506
  17. ASPIRIN [Concomitant]
     Active Substance: ASPIRIN
     Dosage: 12521.88 MG
     Route: 065
  18. ASPIRIN [Concomitant]
     Active Substance: ASPIRIN
     Dosage: 13346.88 MG
  19. CODEINE [Concomitant]
     Active Substance: CODEINE
     Indication: Pain
     Dosage: 120 MG, QD (120 MILLIGRAM DAILY; 30 MG, THERAPY END FLAG: DRUG NO LONGER ADMINISTERED)
     Route: 048
     Dates: start: 201504, end: 20150706
  20. CODEINE [Concomitant]
     Active Substance: CODEINE
     Dosage: 30 MG, QD (30 MILLIGRAM DAILY; THERAPY END FLAG: DRUG NO LON ADMINISTERED)
     Route: 048
     Dates: start: 201504, end: 20150706
  21. ENOXAPARIN [Concomitant]
     Active Substance: ENOXAPARIN
     Indication: Thrombosis prophylaxis
     Dosage: 40 MG
     Route: 048
     Dates: start: 20150630
  22. OMEPRAZOLE [Concomitant]
     Active Substance: OMEPRAZOLE
     Indication: Product used for unknown indication
     Dosage: 20 MG, 1 DOSE WEEKLY
     Route: 065
     Dates: start: 20150630
  23. OMEPRAZOLE [Concomitant]
     Active Substance: OMEPRAZOLE
     Dosage: 17.14 MG
     Route: 065
  24. OMEPRAZOLE [Concomitant]
     Active Substance: OMEPRAZOLE
     Dosage: 48.571 MG
  25. MORPHINE SULFATE [Concomitant]
     Active Substance: MORPHINE SULFATE
     Indication: Pain
     Dosage: 2.5 MG (2.5 ML, THERAPY END FLAG: DRUG NO LONGER ADMINISTERED)
     Route: 065
     Dates: start: 20150706, end: 20150828
  26. ACETAMINOPHEN [Concomitant]
     Active Substance: ACETAMINOPHEN
     Indication: Pain
     Dosage: 4 MG, QD (4 GRAM DAILY; 1 GRAM, THERAPY END FLAG: DRUG NO LONGER ADMINISTERED)
     Route: 048
     Dates: start: 201504, end: 20150706
  27. ACETAMINOPHEN [Concomitant]
     Active Substance: ACETAMINOPHEN
     Dosage: 1 G, QD (1 GRAM DAILY; THERAPY END FLAG: DRUG NO LONGER ADMINISTERED)
     Route: 065
     Dates: start: 201504, end: 20150706
  28. CLODRONIC ACID [Concomitant]
     Active Substance: CLODRONIC ACID
     Indication: Plasma cell myeloma
     Dosage: 1040 MG, QD (1040 MILLIGRAM DAILY; 1040 MG, THERAPY END FLAG: DRUG)
     Route: 065
     Dates: start: 200808, end: 20150728
  29. DURAMORPH [Concomitant]
     Active Substance: MORPHINE SULFATE
     Indication: Pain
     Dosage: UNK
     Route: 065

REACTIONS (20)
  - Plasma cell myeloma [Fatal]
  - Dyspnoea [Fatal]
  - Infection [Fatal]
  - Hypercalcaemia [Fatal]
  - Malaise [Fatal]
  - Anaemia [Fatal]
  - Hepatic enzyme increased [Recovered/Resolved]
  - Arthralgia [Recovered/Resolved]
  - Oedema peripheral [Not Recovered/Not Resolved]
  - Arthritis reactive [Recovered/Resolved]
  - Condition aggravated [Unknown]
  - Blood alkaline phosphatase increased [Recovered/Resolved]
  - Nausea [Recovered/Resolved]
  - Peripheral sensory neuropathy [Not Recovered/Not Resolved]
  - Lower respiratory tract infection [Recovered/Resolved]
  - Diarrhoea [Recovered/Resolved]
  - Thrombocytopenia [Recovered/Resolved]
  - Fatigue [Recovered/Resolved]
  - Neutropenia [Recovered/Resolved]
  - Leukopenia [Recovered/Resolved]

NARRATIVE: CASE EVENT DATE: 20150717
